FAERS Safety Report 7487169-X (Version None)
Quarter: 2011Q2

REPORT INFORMATION
  Report Type: 
  Country: None (occurrence: None)
  Receive Date: 20110518
  Receipt Date: 20110504
  Transmission Date: 20111010
  Serious: Yes (Hospitalization, Other)
  Sender: FDA-Public Use
  Company Number: US-ELI_LILLY_AND_COMPANY-US201009007461

PATIENT
  Sex: Female

DRUGS (4)
  1. FORTEO [Suspect]
     Dosage: 20 UG, QD
     Route: 058
     Dates: start: 20110311
  2. ANALGESICS [Concomitant]
     Route: 065
  3. FORTEO [Suspect]
     Indication: OSTEOPOROSIS
     Dosage: 20 UG, DAILY (1/D)
     Route: 058
  4. ASPIRIN [Concomitant]
     Route: 065

REACTIONS (15)
  - HOSPITALISATION [None]
  - FALL [None]
  - DYSPNOEA [None]
  - DECREASED APPETITE [None]
  - MEDICATION ERROR [None]
  - ANGIOGRAM [None]
  - WEIGHT DECREASED [None]
  - JOINT SWELLING [None]
  - ASTHENIA [None]
  - CEREBROVASCULAR ACCIDENT [None]
  - DEPRESSION [None]
  - BRONCHOPNEUMONIA [None]
  - EMPHYSEMA [None]
  - VISUAL ACUITY REDUCED [None]
  - HEART RATE IRREGULAR [None]
